FAERS Safety Report 20195967 (Version 1)
Quarter: 2021Q4

REPORT INFORMATION
  Report Type: Spontaneous
  Country: CA (occurrence: CA)
  Receive Date: 20211216
  Receipt Date: 20211216
  Transmission Date: 20220304
  Serious: Yes (Other)
  Sender: FDA-Public Use
  Company Number: CA-SAMSUNG BIOEPIS-SB-2021-28700

PATIENT
  Age: 29 Year

DRUGS (2)
  1. ADALIMUMAB [Suspect]
     Active Substance: ADALIMUMAB
     Indication: Psoriasis
     Dosage: UNKNOWN, SOLUTION SUBCUTANEOUS
     Route: 065
  2. ADALIMUMAB [Suspect]
     Active Substance: ADALIMUMAB
     Indication: Arthritis

REACTIONS (2)
  - Dermatomyositis [Unknown]
  - Product use in unapproved indication [Unknown]
